FAERS Safety Report 16672978 (Version 1)
Quarter: 2019Q3

REPORT INFORMATION
  Report Type: Spontaneous
  Country: ZA (occurrence: ZA)
  Receive Date: 20190806
  Receipt Date: 20190806
  Transmission Date: 20191004
  Serious: Yes (Other)
  Sender: FDA-Public Use
  Company Number: PHHY2019ZA178624

PATIENT
  Age: 64 Year
  Sex: Female

DRUGS (2)
  1. ACLASTA [Suspect]
     Active Substance: ZOLEDRONIC ACID
     Dosage: 5 MG, Q12MO (5MG/100ML)
     Route: 041
     Dates: start: 201903
  2. ACLASTA [Suspect]
     Active Substance: ZOLEDRONIC ACID
     Indication: OSTEOPOROSIS
     Dosage: 5 MG, Q12MO (5MG/100ML)
     Route: 041
     Dates: start: 2013, end: 2015

REACTIONS (3)
  - Tooth disorder [Unknown]
  - Foot fracture [Unknown]
  - Impaired healing [Unknown]
